FAERS Safety Report 21297025 (Version 1)
Quarter: 2022Q3

REPORT INFORMATION
  Report Type: Spontaneous
  Country: US (occurrence: None)
  Receive Date: 20220902
  Receipt Date: 20220902
  Transmission Date: 20221026
  Serious: Yes (Life-Threatening, Hospitalization, Disabling)
  Sender: FDA-Public Use
  Company Number: None

PATIENT
  Age: 57 Year
  Sex: Female

DRUGS (1)
  1. DOXORUBICIN [Suspect]
     Active Substance: DOXORUBICIN
     Indication: Breast cancer
     Dates: start: 20170328, end: 20170509

REACTIONS (4)
  - Dizziness [None]
  - Atrial fibrillation [None]
  - Atrial flutter [None]
  - Cardiomyopathy [None]

NARRATIVE: CASE EVENT DATE: 20220601
